FAERS Safety Report 24251661 (Version 1)
Quarter: 2024Q3

REPORT INFORMATION
  Report Type: Spontaneous
  Country: GB (occurrence: GB)
  Receive Date: 20240827
  Receipt Date: 20240827
  Transmission Date: 20241017
  Serious: Yes (Hospitalization, Disabling, Other)
  Sender: NOVO NORDISK
  Company Number: None

PATIENT
  Sex: Female

DRUGS (2)
  1. WEGOVY [Suspect]
     Active Substance: SEMAGLUTIDE
     Indication: Product used for unknown indication
     Dosage: 0.5 MG
  2. WEGOVY [Suspect]
     Active Substance: SEMAGLUTIDE
     Dosage: 1MG (DOSE INCREASED)

REACTIONS (1)
  - Atrial fibrillation [Not Recovered/Not Resolved]
